FAERS Safety Report 4650256-5 (Version None)
Quarter: 2005Q2

REPORT INFORMATION
  Report Type: 
  Country: None (occurrence: None)
  Receive Date: 20050428
  Receipt Date: 20050415
  Transmission Date: 20051028
  Serious: Yes (Other)
  Sender: FDA-Public Use
  Company Number: 2005060819

PATIENT
  Age: 33 Year
  Sex: Female
  Weight: 61.2356 kg

DRUGS (16)
  1. CELEBREX [Suspect]
     Indication: BACK INJURY
     Dosage: ORAL
     Route: 048
     Dates: start: 20000601, end: 20000101
  2. BEXTRA [Suspect]
     Indication: ARTHRALGIA
     Dosage: ORAL
     Route: 048
     Dates: start: 20010101
  3. BEXTRA [Suspect]
     Indication: BACK PAIN
     Dosage: ORAL
     Route: 048
     Dates: start: 20010101
  4. ROFECOXIB [Suspect]
     Indication: BACK INJURY
     Dosage: ORAL
     Route: 048
     Dates: start: 20000101, end: 20000101
  5. ETANERCEPT (ETANERCEPT) [Concomitant]
  6. OXYCODONE HYDROCHLORIDE AND ACETAMINOPHEN [Concomitant]
  7. TIZANIDINE HCL [Concomitant]
  8. VENLAFAXINE HCL [Concomitant]
  9. CONJUGATED ESTROGENS [Concomitant]
  10. HYDROXYCHLOROQUINE PHOSPHATE (HYDROXYCHLOROQUINE PHOSPHATE) [Concomitant]
  11. ALPRAZOLAM [Concomitant]
  12. FOLIC ACID [Concomitant]
  13. METHOTREXATE [Concomitant]
  14. OMEPRAZOLE [Concomitant]
  15. IBUPROFEN [Concomitant]
  16. METHADONE HCL [Concomitant]

REACTIONS (10)
  - ARTHRALGIA [None]
  - BACK PAIN [None]
  - CARDIAC DISORDER [None]
  - CHEST PAIN [None]
  - DIZZINESS [None]
  - DYSPEPSIA [None]
  - FEELING ABNORMAL [None]
  - FIBROMYALGIA [None]
  - HEART RATE INCREASED [None]
  - HYPERTENSION [None]
